FAERS Safety Report 21962276 (Version 1)
Quarter: 2023Q1

REPORT INFORMATION
  Report Type: Report from Study
  Country: US (occurrence: None)
  Receive Date: 20230207
  Receipt Date: 20230207
  Transmission Date: 20230417
  Serious: Yes (Other)
  Sender: FDA-Public Use
  Company Number: US-Eisai Medical Research-EC-2023-133311

PATIENT
  Age: 58 Year
  Sex: Female

DRUGS (5)
  1. LENVIMA [Suspect]
     Active Substance: LENVATINIB
     Indication: Endometrial neoplasm
     Route: 048
     Dates: start: 20221101, end: 20221103
  2. LENVIMA [Suspect]
     Active Substance: LENVATINIB
     Route: 048
     Dates: start: 20221122, end: 20221222
  3. KEYTRUDA [Suspect]
     Active Substance: PEMBROLIZUMAB
     Indication: Product used for unknown indication
     Route: 041
     Dates: start: 20221101, end: 20221213
  4. ESCITALOPRAM [Concomitant]
     Active Substance: ESCITALOPRAM OXALATE
  5. OFEV [Concomitant]
     Active Substance: NINTEDANIB

REACTIONS (3)
  - Colitis [Recovered/Resolved]
  - Hypertension [Not Recovered/Not Resolved]
  - Dehydration [Unknown]

NARRATIVE: CASE EVENT DATE: 20221101
